FAERS Safety Report 17016885 (Version 2)
Quarter: 2019Q4

REPORT INFORMATION
  Report Type: Report from Study
  Country: BE (occurrence: BE)
  Receive Date: 20191111
  Receipt Date: 20191119
  Transmission Date: 20200122
  Serious: Yes (Other)
  Sender: FDA-Public Use
  Company Number: BE-PFIZER INC-2019483354

PATIENT

DRUGS (2)
  1. GEMCITABINE HYDROCHLORIDE. [Suspect]
     Active Substance: GEMCITABINE HYDROCHLORIDE
     Indication: PANCREATIC CARCINOMA METASTATIC
     Dosage: 1000 MG/M2, WEEKLY FOR 7 WEEKS, 1 WEEK OFF, ON DAYS 1, 8 AND 15 OF SUBSEQUENT 28-DAY CYCLES
     Route: 041
  2. PIMASERTIB [Suspect]
     Active Substance: PIMASERTIB HYDROCHLORIDE
     Indication: PANCREATIC CARCINOMA METASTATIC
     Dosage: 75 MG, 2X/DAY  AS CONTINUOUS REGIMEN FOR 28 DAYS
     Route: 048

REACTIONS (1)
  - Suicidal ideation [Unknown]
